FAERS Safety Report 14947605 (Version 1)
Quarter: 2018Q2

REPORT INFORMATION
  Report Type: Spontaneous
  Country: US (occurrence: US)
  Receive Date: 20180508
  Receipt Date: 20180508
  Transmission Date: 20180711
  Serious: Yes (Other)
  Sender: FDA-Public Use
  Company Number: None

PATIENT
  Age: 14 Year
  Sex: Female
  Weight: 73 kg

DRUGS (2)
  1. GAMUNEX [Suspect]
     Active Substance: HUMAN IMMUNOGLOBULIN G
     Indication: MYASTHENIA GRAVIS
     Dates: start: 20180410, end: 20180410
  2. GAMUNEX [Suspect]
     Active Substance: HUMAN IMMUNOGLOBULIN G
     Indication: MYASTHENIA GRAVIS
     Dates: start: 20180409, end: 20180409

REACTIONS (10)
  - Vomiting [None]
  - Rash [None]
  - Haemolytic anaemia [None]
  - Fatigue [None]
  - Pain in extremity [None]
  - Headache [None]
  - Pyrexia [None]
  - Pain [None]
  - Somnolence [None]
  - Diarrhoea [None]

NARRATIVE: CASE EVENT DATE: 20180411
